FAERS Safety Report 5738140-7 (Version None)
Quarter: 2008Q2

REPORT INFORMATION
  Report Type: 
  Country: None (occurrence: None)
  Receive Date: 20080514
  Receipt Date: 20080508
  Transmission Date: 20081010
  Serious: Yes (Hospitalization)
  Sender: FDA-Public Use
  Company Number: GB-PFIZER INC-2005010825

PATIENT
  Age: 60 Year
  Sex: Female

DRUGS (3)
  1. PHENYTOIN [Suspect]
     Indication: EPILEPSY
     Route: 065
  2. DILTIAZEM [Interacting]
     Indication: BLOOD PRESSURE
     Route: 048
     Dates: start: 20041217, end: 20041221
  3. WARFARIN SODIUM [Interacting]
     Indication: ILL-DEFINED DISORDER
     Route: 065

REACTIONS (4)
  - CONTUSION [None]
  - DIZZINESS [None]
  - DRUG INTERACTION [None]
  - FALL [None]
